FAERS Safety Report 11873086 (Version 2)
Quarter: 2016Q1

REPORT INFORMATION
  Report Type: Spontaneous
  Country: US (occurrence: US)
  Receive Date: 20151228
  Receipt Date: 20160222
  Transmission Date: 20160526
  Serious: Yes (Hospitalization, Other)
  Sender: FDA-Public Use
  Company Number: US-SMITH AND NEPHEW, INC-2015SMT00667

PATIENT
  Age: 55 Year
  Sex: Female
  Weight: 64.85 kg

DRUGS (3)
  1. REGRANEX [Suspect]
     Active Substance: BECAPLERMIN
     Indication: WOUND
     Dosage: EVERY 12 HOURS
     Route: 061
     Dates: start: 2015, end: 20151029
  2. LANTUS [Concomitant]
     Active Substance: INSULIN GLARGINE
     Dosage: UNK, AS NEEDED
  3. UNSPECIFIED INSULIN [Concomitant]
     Active Substance: INSULIN NOS
     Dosage: 5 U, 2X/DAY

REACTIONS (10)
  - Hyperlipidaemia [Unknown]
  - Wound complication [Recovered/Resolved with Sequelae]
  - Bacterial test positive [Unknown]
  - Acute kidney injury [Recovered/Resolved]
  - Osteomyelitis [Recovered/Resolved with Sequelae]
  - Diabetic retinopathy [Unknown]
  - Toe amputation [Recovered/Resolved with Sequelae]
  - Inappropriate schedule of drug administration [Unknown]
  - Streptococcus test positive [Unknown]
  - Gastrooesophageal reflux disease [Unknown]

NARRATIVE: CASE EVENT DATE: 2015
